FAERS Safety Report 10552776 (Version 6)
Quarter: 2015Q2

REPORT INFORMATION
  Report Type: Spontaneous
  Country: IE (occurrence: IE)
  Receive Date: 20141029
  Receipt Date: 20150422
  Transmission Date: 20150821
  Serious: Yes (Life-Threatening, Other)
  Sender: FDA-Public Use
  Company Number: IE-BAXTER-2014BAX062930

PATIENT
  Age: 44 Year
  Sex: Female
  Weight: 77.6 kg

DRUGS (7)
  1. ALDACTONE [Concomitant]
     Active Substance: SPIRONOLACTONE
     Indication: PRODUCT USED FOR UNKNOWN INDICATION
     Route: 048
  2. ALBUMIN 20% BP IMMUNO [Suspect]
     Active Substance: ALBUMIN (HUMAN)
     Indication: NEPHROPATHY
     Dosage: 1 UNIT
     Route: 042
     Dates: start: 20140919, end: 20140919
  3. HUMAN ALBUMIN 50 G/L BAXTER SOLUTION FOR INFUSION [Suspect]
     Active Substance: ALBUMIN (HUMAN)
     Indication: PRODUCT USED FOR UNKNOWN INDICATION
     Route: 065
     Dates: start: 20140919
  4. ALBUMIN 20% BP IMMUNO [Suspect]
     Active Substance: ALBUMIN (HUMAN)
     Indication: HEPATITIS C
  5. ALBUMIN 20% BP IMMUNO [Suspect]
     Active Substance: ALBUMIN (HUMAN)
     Indication: HEPATIC FAILURE
     Route: 065
  6. MENADIONE [Concomitant]
     Active Substance: MENADIONE
     Indication: PRODUCT USED FOR UNKNOWN INDICATION
     Route: 048
     Dates: start: 20140919
  7. MYCOSTATIN [Concomitant]
     Active Substance: NYSTATIN
     Indication: PRODUCT USED FOR UNKNOWN INDICATION
     Route: 048

REACTIONS (3)
  - Anaphylactic reaction [Recovered/Resolved]
  - Hypertension [Recovered/Resolved]
  - Visual impairment [Recovered/Resolved]

NARRATIVE: CASE EVENT DATE: 20140919
